FAERS Safety Report 23575851 (Version 3)
Quarter: 2024Q2

REPORT INFORMATION
  Report Type: Spontaneous
  Country: US (occurrence: US)
  Receive Date: 20240228
  Receipt Date: 20240619
  Transmission Date: 20240715
  Serious: No
  Sender: FDA-Public Use
  Company Number: US-Blueprint Medicines Corporation-2482

PATIENT
  Sex: Female

DRUGS (3)
  1. AYVAKIT [Suspect]
     Active Substance: AVAPRITINIB
     Indication: Advanced systemic mastocytosis
     Route: 048
     Dates: start: 20240131
  2. AYVAKIT [Suspect]
     Active Substance: AVAPRITINIB
     Dosage: ONE 50MG AND ONE 100MG FOR A TOTAL OF 150 MG
     Route: 048
  3. AYVAKIT [Suspect]
     Active Substance: AVAPRITINIB
     Dosage: ONE 50MG AND ONE 100MG FOR A TOTAL OF 150 MG
     Route: 048

REACTIONS (7)
  - Diarrhoea [Unknown]
  - Asthenia [Unknown]
  - Fatigue [Unknown]
  - Anxiety [Unknown]
  - Tryptase [Unknown]
  - Haemoglobin abnormal [Unknown]
  - Dizziness [Unknown]
